FAERS Safety Report 4456007-1 (Version None)
Quarter: 2004Q3

REPORT INFORMATION
  Report Type: 
  Country: None (occurrence: None)
  Receive Date: 20040920
  Receipt Date: 20040908
  Transmission Date: 20050211
  Serious: Yes (Hospitalization)
  Sender: FDA-Public Use
  Company Number: 2004-00803FE

PATIENT
  Age: 46 Year
  Sex: Male

DRUGS (2)
  1. PENTASA [Suspect]
     Indication: CROHN'S DISEASE
     Dosage: 4 G
     Route: 048
     Dates: start: 20040408, end: 20040610
  2. PREDNISOLONE [Concomitant]

REACTIONS (3)
  - ARTHRALGIA [None]
  - DYSPNOEA [None]
  - PYREXIA [None]
